FAERS Safety Report 16650065 (Version 1)
Quarter: 2019Q3

REPORT INFORMATION
  Report Type: Spontaneous
  Country: US (occurrence: US)
  Receive Date: 20190731
  Receipt Date: 20190731
  Transmission Date: 20191004
  Serious: No
  Sender: FDA-Public Use
  Company Number: US-LUPIN PHARMACEUTICALS INC.-2019-02651

PATIENT
  Age: 60 Year

DRUGS (1)
  1. CIPROFLOXACIN. [Suspect]
     Active Substance: CIPROFLOXACIN
     Indication: URINARY TRACT INFECTION
     Dosage: 750 MILLIGRAM, BID
     Route: 065

REACTIONS (3)
  - Tendonitis [Unknown]
  - Inflammatory pain [Unknown]
  - Pain in extremity [Unknown]
